FAERS Safety Report 8572591-0 (Version None)
Quarter: 2012Q3

REPORT INFORMATION
  Report Type: 
  Country: None (occurrence: None)
  Receive Date: 20120806
  Receipt Date: 20120727
  Transmission Date: 20120928
  Serious: Yes (Other)
  Sender: FDA-Public Use
  Company Number: CA-ROCHE-1095148

PATIENT
  Sex: Male
  Weight: 66.738 kg

DRUGS (4)
  1. DIPHENHYDRAMINE HCL [Concomitant]
     Route: 048
     Dates: start: 20120726, end: 20120726
  2. METHYLPREDNISOLONE [Concomitant]
     Route: 042
     Dates: start: 20120726, end: 20120726
  3. AVASTIN [Suspect]
     Indication: GLIOBLASTOMA
     Route: 042
     Dates: start: 20120712
  4. DECADRON PHOSPHATE [Concomitant]

REACTIONS (2)
  - HYPOAESTHESIA ORAL [None]
  - HYPOAESTHESIA [None]
